FAERS Safety Report 8853100 (Version 1)
Quarter: 2012Q4

REPORT INFORMATION
  Report Type: 
  Country: CH (occurrence: CH)
  Receive Date: 20121022
  Receipt Date: 20121022
  Transmission Date: 20130627
  Serious: Yes (Hospitalization, Other)
  Sender: FDA-Public Use
  Company Number: CH-ASTRAZENECA-2012SE78380

PATIENT
  Age: 80 Year
  Sex: Female
  Weight: 50 kg

DRUGS (4)
  1. ATACAND [Suspect]
     Indication: ESSENTIAL HYPERTENSION
     Route: 048
     Dates: end: 201209
  2. TILUR [Suspect]
     Indication: MUSCULOSKELETAL PAIN
     Route: 048
     Dates: end: 201209
  3. TILUR [Suspect]
     Indication: SPONDYLITIS
     Route: 048
     Dates: end: 201209
  4. TILUR [Suspect]
     Indication: OSTEOPOROSIS
     Route: 048
     Dates: end: 201209

REACTIONS (4)
  - Renal aneurysm [Unknown]
  - Dehydration [Unknown]
  - Renal failure acute [Recovering/Resolving]
  - Creatinine renal clearance decreased [Unknown]
